FAERS Safety Report 19940759 (Version 1)
Quarter: 2021Q4

REPORT INFORMATION
  Report Type: Other
  Country: DE (occurrence: DE)
  Receive Date: 20211011
  Receipt Date: 20211011
  Transmission Date: 20220303
  Serious: Yes (Other)
  Sender: FDA-Public Use
  Company Number: DE-ROCHE-2930476

PATIENT
  Age: 61 Year
  Sex: Female

DRUGS (5)
  1. BEVACIZUMAB [Suspect]
     Active Substance: BEVACIZUMAB
     Indication: Squamous cell carcinoma of the vulva
     Route: 065
  2. PACLITAXEL [Concomitant]
     Active Substance: PACLITAXEL
     Indication: Squamous cell carcinoma of the vulva
  3. CAPECITABINE [Concomitant]
     Active Substance: CAPECITABINE
     Indication: Squamous cell carcinoma of the vulva
     Route: 048
  4. PEMBROLIZUMAB [Concomitant]
     Active Substance: PEMBROLIZUMAB
     Indication: Squamous cell carcinoma of the vulva
  5. ERLOTINIB [Concomitant]
     Active Substance: ERLOTINIB
     Route: 048

REACTIONS (4)
  - Pericardial effusion [Unknown]
  - Diarrhoea [Unknown]
  - Lymphoedema [Unknown]
  - Hypertension [Unknown]
